FAERS Safety Report 5982702-9 (Version None)
Quarter: 2008Q4

REPORT INFORMATION
  Report Type: 
  Country: None (occurrence: None)
  Receive Date: 20081205
  Receipt Date: 20081205
  Transmission Date: 20090506
  Serious: No
  Sender: FDA-Public Use
  Company Number: None

PATIENT
  Age: 28 Year
  Sex: Female

DRUGS (1)
  1. MIRENA [Suspect]
     Indication: CONTRACEPTION
     Dosage: INTRA-UTERINE
     Route: 015
     Dates: start: 20040601, end: 20050124

REACTIONS (6)
  - ABDOMINAL PAIN [None]
  - DYSPAREUNIA [None]
  - INFERTILITY FEMALE [None]
  - MENSTRUATION IRREGULAR [None]
  - UTERINE INFECTION [None]
  - VAGINAL DISCHARGE [None]
